FAERS Safety Report 23272441 (Version 1)
Quarter: 2023Q4

REPORT INFORMATION
  Report Type: Spontaneous
  Country: US (occurrence: None)
  Receive Date: 20231206
  Receipt Date: 20231206
  Transmission Date: 20240109
  Serious: Yes (Other)
  Sender: FDA-Public Use
  Company Number: None

PATIENT
  Age: 9 Year
  Sex: Female
  Weight: 35.1 kg

DRUGS (10)
  1. BANZEL [Suspect]
     Active Substance: RUFINAMIDE
     Indication: Epilepsy
     Dosage: FREQUENCY : EVERY 12 HOURS;?
     Route: 048
  2. ADDERALL XR [Concomitant]
     Active Substance: AMPHETAMINE ASPARTATE\AMPHETAMINE SULFATE\DEXTROAMPHETAMINE SACCHARATE\DEXTROAMPHETAMINE SULFATE
  3. CHOLECALCIFEROL [Concomitant]
     Active Substance: CHOLECALCIFEROL
  4. CLONAZEPAM [Concomitant]
  5. EPIDIOLEX [Concomitant]
     Active Substance: CANNABIDIOL
  6. FLUOXETINE [Concomitant]
     Active Substance: FLUOXETINE HYDROCHLORIDE
  7. GABAPENTIN [Concomitant]
  8. RUFINAMIDE [Concomitant]
  9. MELATONIN [Concomitant]
  10. Nayzilam 5mg/spray [Concomitant]

REACTIONS (10)
  - Somnolence [None]
  - Cough [None]
  - Oropharyngeal pain [None]
  - Lymphadenopathy [None]
  - Urinary incontinence [None]
  - Micturition urgency [None]
  - Irritability [None]
  - Behaviour disorder [None]
  - Diarrhoea [None]
  - Impulsive behaviour [None]

NARRATIVE: CASE EVENT DATE: 20231018
